FAERS Safety Report 7414875 (Version 6)
Quarter: 2013Q4

REPORT INFORMATION
  Report Type: Spontaneous
  Country: US (occurrence: US)
  Receive Date: 20100609
  Receipt Date: 20131024
  Transmission Date: 20140711
  Serious: Yes (Hospitalization, Other)
  Sender: FDA-Public Use
  Company Number: US-ROCHE-659110

PATIENT
  Age: 30 Year
  Sex: Female
  Weight: 71.2 kg

DRUGS (5)
  1. ACCUTANE [Suspect]
     Indication: ACNE
     Route: 048
  2. ACCUTANE [Suspect]
     Route: 048
  3. ACCUTANE [Suspect]
     Route: 048
  4. ACCUTANE [Suspect]
     Route: 048
     Dates: start: 20001122, end: 20010412
  5. VITAMIN E [Concomitant]

REACTIONS (15)
  - Nephrolithiasis [Unknown]
  - Depression [Unknown]
  - Suicidal ideation [Unknown]
  - Inflammatory bowel disease [Unknown]
  - Crohn^s disease [Unknown]
  - Colitis ulcerative [Unknown]
  - Anal fissure [Unknown]
  - Acute sinusitis [Unknown]
  - Headache [Recovered/Resolved]
  - Arthralgia [Recovered/Resolved]
  - Dry skin [Unknown]
  - Rash [Unknown]
  - Blood triglycerides increased [Recovered/Resolved]
  - Mood swings [Unknown]
  - Conjunctivitis [Unknown]
